FAERS Safety Report 19027847 (Version 1)
Quarter: 2021Q1

REPORT INFORMATION
  Report Type: Spontaneous
  Country: PT (occurrence: PT)
  Receive Date: 20210318
  Receipt Date: 20210318
  Transmission Date: 20210420
  Serious: Yes (Hospitalization, Other)
  Sender: FDA-Public Use
  Company Number: PT-ASTRAZENECA-2021A128207

PATIENT
  Age: 42 Year
  Sex: Male

DRUGS (3)
  1. KCL [Concomitant]
     Active Substance: POTASSIUM CHLORIDE
  2. INSULIN THERAPY [Concomitant]
  3. FORXIGA [Suspect]
     Active Substance: DAPAGLIFLOZIN
     Indication: TYPE 1 DIABETES MELLITUS
     Route: 048

REACTIONS (3)
  - COVID-19 [Unknown]
  - Euglycaemic diabetic ketoacidosis [Unknown]
  - Off label use [Unknown]
